FAERS Safety Report 4600050-6 (Version None)
Quarter: 2005Q1

REPORT INFORMATION
  Report Type: 
  Country: None (occurrence: None)
  Receive Date: 20050307
  Receipt Date: 20050110
  Transmission Date: 20050727
  Serious: Yes (Death)
  Sender: FDA-Public Use
  Company Number: US-BRISTOL-MYERS SQUIBB COMPANY-12820387

PATIENT
  Sex: Female

DRUGS (6)
  1. PLATINOL-AQ [Suspect]
  2. MEGACE [Suspect]
  3. ERBITUX [Suspect]
     Route: 042
  4. BENADRYL [Concomitant]
     Route: 042
  5. DECADRON [Concomitant]
     Route: 042
  6. TAGAMET [Concomitant]
     Route: 042

REACTIONS (1)
  - DEATH [None]
